FAERS Safety Report 6444122-2 (Version None)
Quarter: 2009Q4

REPORT INFORMATION
  Report Type: 
  Country: None (occurrence: None)
  Receive Date: 20091118
  Receipt Date: 20091109
  Transmission Date: 20100525
  Serious: Yes (Life-Threatening)
  Sender: FDA-Public Use
  Company Number: JP-JNJFOC-20091102575

PATIENT
  Age: 77 Year
  Sex: Male

DRUGS (1)
  1. FINIBAX [Suspect]
     Indication: CHOLECYSTITIS ACUTE
     Route: 041
     Dates: start: 20091015, end: 20091104

REACTIONS (1)
  - PANCYTOPENIA [None]
